FAERS Safety Report 9224586 (Version 1)
Quarter: 2013Q2

REPORT INFORMATION
  Report Type: Spontaneous
  Country: US (occurrence: None)
  Receive Date: 20130411
  Receipt Date: 20130411
  Transmission Date: 20140414
  Serious: Yes (Hospitalization)
  Sender: FDA-Public Use
  Company Number: None

PATIENT
  Age: 69 Year
  Sex: Male
  Weight: 102 kg

DRUGS (20)
  1. WARFARIN [Suspect]
     Indication: ATRIAL FIBRILLATION
     Dosage: 40 MG   DAILY   PO?CHRONIC
     Route: 048
  2. ASA [Suspect]
     Dosage: 61MG  X  2  TABLETS   DAILY?CHRONIC
     Route: 048
  3. AMIODARONE [Concomitant]
  4. LIPITOR [Concomitant]
  5. COZAAR [Concomitant]
  6. SUTENT [Concomitant]
  7. LASIX [Concomitant]
  8. TAMSULOSIN [Concomitant]
  9. FINASTERIDE [Concomitant]
  10. ALPRAZOLAM [Concomitant]
  11. ALLEGRA [Concomitant]
  12. CA+D [Concomitant]
  13. KLORCON [Concomitant]
  14. LOPRESSOR [Concomitant]
  15. NORVASC [Concomitant]
  16. FISH OIL [Concomitant]
  17. VITAMIN B12 [Concomitant]
  18. PERCOCET [Concomitant]
  19. VIT B COMPLEX WITH C [Concomitant]
  20. POLY IRON [Concomitant]

REACTIONS (7)
  - Epistaxis [None]
  - Thrombocytopenia [None]
  - International normalised ratio increased [None]
  - Sinusitis [None]
  - Diarrhoea [None]
  - Presyncope [None]
  - No therapeutic response [None]
